FAERS Safety Report 9417933 (Version 1)
Quarter: 2013Q3

REPORT INFORMATION
  Report Type: Report from Study
  Country: FR (occurrence: FR)
  Receive Date: 20130724
  Receipt Date: 20130724
  Transmission Date: 20140515
  Serious: Yes (Other)
  Sender: FDA-Public Use
  Company Number: FR-BAXTER-2013BAX029411

PATIENT
  Sex: 0

DRUGS (9)
  1. ENDOXAN 2000 MG, LYOPHILISAT POUR SOLUTION INJECTABLE [Suspect]
     Indication: B-CELL LYMPHOMA
     Route: 042
  2. ENDOXAN 2000 MG, LYOPHILISAT POUR SOLUTION INJECTABLE [Suspect]
     Route: 042
  3. CELLTOP_ETOPOSIDE 20.00 MG/ML_SOLUTION FOR INJECTION_VIAL, GLASS [Suspect]
     Indication: B-CELL LYMPHOMA
     Route: 042
  4. CELLTOP_ETOPOSIDE 20.00 MG/ML_SOLUTION FOR INJECTION_VIAL, GLASS [Suspect]
  5. DOXORUBICIN /00330902/ [Suspect]
     Indication: B-CELL LYMPHOMA
     Route: 042
  6. DOXORUBICIN /00330902/ [Suspect]
     Route: 042
  7. PREDNISOLONE /00016202/ [Suspect]
     Indication: B-CELL LYMPHOMA
     Route: 048
  8. INTERFERON ALFA-2A [Suspect]
     Indication: B-CELL LYMPHOMA
     Dosage: 4.5 MILLION UNIT (MU) OR 3 MU
  9. RITUXIMAB [Suspect]
     Indication: B-CELL LYMPHOMA

REACTIONS (1)
  - Lung neoplasm malignant [Unknown]
